FAERS Safety Report 6956276-X (Version None)
Quarter: 2010Q3

REPORT INFORMATION
  Report Type: 
  Country: None (occurrence: None)
  Receive Date: 20100830
  Receipt Date: 20100820
  Transmission Date: 20110219
  Serious: Yes (Other)
  Sender: FDA-Public Use
  Company Number: US-PURDUE-USA-2010-0045861

PATIENT
  Sex: Female

DRUGS (2)
  1. OXYCODONE HCL [Suspect]
     Indication: PRODUCT USED FOR UNKNOWN INDICATION
     Dosage: UNK
  2. TENORMIN [Concomitant]
     Indication: VENTRICULAR EXTRASYSTOLES
     Dosage: UNK

REACTIONS (3)
  - CONDITION AGGRAVATED [None]
  - HEADACHE [None]
  - VENTRICULAR EXTRASYSTOLES [None]
